FAERS Safety Report 6261637-0 (Version None)
Quarter: 2009Q3

REPORT INFORMATION
  Report Type: 
  Country: None (occurrence: None)
  Receive Date: 20090709
  Receipt Date: 20090630
  Transmission Date: 20100115
  Serious: Yes (Hospitalization)
  Sender: FDA-Public Use
  Company Number: JP-ASTRAZENECA-2009SE04036

PATIENT
  Sex: Female

DRUGS (2)
  1. BLOPRESS [Suspect]
     Indication: DRUG USE FOR UNKNOWN INDICATION
     Route: 048
  2. ANTI-DIABETICS NOS [Concomitant]
     Indication: DIABETES MELLITUS
     Route: 065

REACTIONS (2)
  - ANGIOEDEMA [None]
  - RASH PUSTULAR [None]
